FAERS Safety Report 25442444 (Version 1)
Quarter: 2025Q2

REPORT INFORMATION
  Report Type: Spontaneous
  Country: FR (occurrence: FR)
  Receive Date: 20250617
  Receipt Date: 20250617
  Transmission Date: 20250716
  Serious: Yes (Death, Hospitalization)
  Sender: NOVITIUM PHARMA
  Company Number: FR-NOVITIUMPHARMA-2025FRNVP01371

PATIENT
  Age: 84 Year
  Sex: Male

DRUGS (3)
  1. SULFAMETHOXAZOLE\TRIMETHOPRIM [Suspect]
     Active Substance: SULFAMETHOXAZOLE\TRIMETHOPRIM
     Indication: Pneumocystis jirovecii pneumonia
     Dosage: 960MG/4800MG
     Route: 042
  2. METHYLPREDNISOLONE [Concomitant]
     Active Substance: METHYLPREDNISOLONE
     Indication: Pneumocystis jirovecii pneumonia
  3. METHYLPREDNISOLONE [Concomitant]
     Active Substance: METHYLPREDNISOLONE
     Indication: Prophylaxis
     Route: 042

REACTIONS (1)
  - Drug ineffective [Fatal]
